FAERS Safety Report 5307288-3 (Version None)
Quarter: 2007Q2

REPORT INFORMATION
  Report Type: 
  Country: None (occurrence: None)
  Receive Date: 20070425
  Receipt Date: 20070424
  Transmission Date: 20071010
  Serious: Yes (Hospitalization)
  Sender: FDA-Public Use
  Company Number: US-BRISTOL-MYERS SQUIBB COMPANY-13742465

PATIENT
  Age: 50 Year
  Sex: Female

DRUGS (8)
  1. CYTOXAN [Suspect]
     Indication: BREAST CANCER
     Route: 041
     Dates: start: 20070221, end: 20070221
  2. ADRIAMYCIN PFS [Suspect]
     Indication: BREAST CANCER
     Route: 041
     Dates: start: 20070221, end: 20070221
  3. NEULASTA [Suspect]
     Indication: BREAST CANCER
     Route: 058
     Dates: start: 20070222, end: 20070222
  4. BEVACIZUMAB [Suspect]
     Indication: BREAST CANCER
     Route: 041
     Dates: start: 20070221, end: 20070221
  5. GEODON [Concomitant]
     Indication: ANXIETY
     Route: 048
     Dates: start: 20030101
  6. COSOPT [Concomitant]
     Indication: GLAUCOMA
     Route: 047
     Dates: start: 20030101
  7. PREVACID [Concomitant]
     Indication: GASTROOESOPHAGEAL REFLUX DISEASE
     Route: 048
     Dates: start: 20030101
  8. FAMOTIDINE [Concomitant]
     Indication: GASTROOESOPHAGEAL REFLUX DISEASE
     Route: 048
     Dates: start: 20070226

REACTIONS (3)
  - CARDIOMEGALY [None]
  - PANCYTOPENIA [None]
  - URINARY TRACT INFECTION [None]
